FAERS Safety Report 5928111-X (Version None)
Quarter: 2008Q4

REPORT INFORMATION
  Report Type: 
  Country: None (occurrence: None)
  Receive Date: 20081020
  Receipt Date: 20081001
  Transmission Date: 20090506
  Serious: Yes (Congenital Anomaly)
  Sender: FDA-Public Use
  Company Number: 8018471

PATIENT
  Sex: Male
  Weight: 7.43 kg

DRUGS (2)
  1. KEPPRA [Suspect]
     Dosage: 500 MG 2/D TRP
     Route: 064
     Dates: start: 20051221, end: 20060605
  2. KEPPRA [Suspect]
     Dosage: 1250 MG TRP
     Route: 064
     Dates: start: 20060606, end: 20060826

REACTIONS (14)
  - ATRIAL SEPTAL DEFECT [None]
  - CARDIAC SEPTAL DEFECT [None]
  - CONGENITAL HEART VALVE DISORDER [None]
  - DEVELOPMENTAL DELAY [None]
  - FAILURE TO THRIVE [None]
  - FINE MOTOR DELAY [None]
  - GROWTH RETARDATION [None]
  - HEART DISEASE CONGENITAL [None]
  - MATERNAL DRUGS AFFECTING FOETUS [None]
  - PREMATURE BABY [None]
  - SPEECH DISORDER DEVELOPMENTAL [None]
  - TRICUSPID VALVE DISEASE [None]
  - ULTRASOUND ANTENATAL SCREEN ABNORMAL [None]
  - VENTRICULAR SEPTAL DEFECT [None]
